FAERS Safety Report 7121459-5 (Version None)
Quarter: 2010Q4

REPORT INFORMATION
  Report Type: 
  Country: None (occurrence: None)
  Receive Date: 20101119
  Receipt Date: 20101119
  Transmission Date: 20110411
  Serious: Yes (Hospitalization)
  Sender: FDA-Public Use
  Company Number: None

PATIENT
  Sex: Female
  Weight: 28.5 kg

DRUGS (5)
  1. CYCLOPHOSPHAMIDE [Suspect]
     Dosage: 1100 MG
     Dates: end: 20101022
  2. CYTARABINE [Suspect]
     Dosage: 652 MG
     Dates: end: 20101101
  3. MERCAPTOPURINE [Suspect]
     Dosage: 450 MG
     Dates: end: 20101104
  4. METHOTREXATE [Suspect]
     Dosage: 60 MG
     Dates: end: 20101112
  5. VINCRISTINE SULFATE [Suspect]
     Dosage: 3.2MG
     Dates: end: 20101112

REACTIONS (5)
  - ATELECTASIS [None]
  - FEBRILE NEUTROPENIA [None]
  - OTITIS MEDIA ACUTE [None]
  - PNEUMONIA [None]
  - TACHYCARDIA [None]
